FAERS Safety Report 7496459-6 (Version None)
Quarter: 2011Q2

REPORT INFORMATION
  Report Type: 
  Country: None (occurrence: None)
  Receive Date: 20110523
  Receipt Date: 20110512
  Transmission Date: 20111010
  Serious: Yes (Life-Threatening, Hospitalization, Other)
  Sender: FDA-Public Use
  Company Number: CA-ROCHE-479629

PATIENT
  Sex: Male
  Weight: 106.8 kg

DRUGS (15)
  1. CAPECITABINE [Suspect]
     Dosage: ADMINISTERED ON DAYS 1-14 OF EVERY 3 WEEK CYCLE.
     Route: 048
     Dates: start: 20051103
  2. ELTROXIN [Suspect]
     Route: 065
     Dates: start: 20070105, end: 20110509
  3. BEVACIZUMAB [Suspect]
     Dosage: LAST DOSE PRIOR TO SAE: 15 SEPT 2006 DOSAGE FORM MENTIONED AS INFUSION
     Route: 042
     Dates: start: 20051103, end: 20060915
  4. OXALIPLATIN [Suspect]
     Dosage: LAST DOSE PRIOR TO SAE: 30 MAR 2006
     Route: 042
     Dates: start: 20051103, end: 20060330
  5. ELTROXIN [Suspect]
     Route: 065
     Dates: start: 20110509
  6. RAMIPRIL [Concomitant]
     Dates: start: 20110511
  7. RAMIPRIL [Concomitant]
  8. METFORMIN [Concomitant]
     Route: 065
     Dates: start: 20091016
  9. WARFARIN SODIUM [Concomitant]
     Route: 065
     Dates: start: 20081021
  10. METOPROLOL SUCCINATE [Concomitant]
  11. SOTALOL HCL [Concomitant]
     Dates: start: 20080601, end: 20110510
  12. ASPIRIN [Concomitant]
  13. CAPECITABINE [Suspect]
     Dosage: DOSE LOWERED TO 3300MG AT CYCLE 4 (05 JAN 2006) DUE TO GRADE 2 NEUROTOXICITY.
     Route: 048
     Dates: end: 20060413
  14. LIPITOR [Concomitant]
     Route: 065
  15. FENTANYL [Concomitant]

REACTIONS (2)
  - MYOCARDIAL INFARCTION [None]
  - ATRIAL FIBRILLATION [None]
